FAERS Safety Report 23043224 (Version 1)
Quarter: 2023Q4

REPORT INFORMATION
  Report Type: Spontaneous
  Country: US (occurrence: US)
  Receive Date: 20231009
  Receipt Date: 20231009
  Transmission Date: 20240110
  Serious: No
  Sender: FDA-Public Use
  Company Number: US-AMGEN-USASP2023175650

PATIENT

DRUGS (1)
  1. PROLIA [Suspect]
     Active Substance: DENOSUMAB
     Indication: Osteoporosis
     Dosage: UNK
     Route: 065
     Dates: start: 202306

REACTIONS (7)
  - Rash pruritic [Not Recovered/Not Resolved]
  - Rash erythematous [Recovering/Resolving]
  - Skin swelling [Unknown]
  - Rash macular [Unknown]
  - Rash vesicular [Unknown]
  - Skin exfoliation [Unknown]
  - Pain [Unknown]

NARRATIVE: CASE EVENT DATE: 20230101
